FAERS Safety Report 7025922-7 (Version None)
Quarter: 2010Q4

REPORT INFORMATION
  Report Type: 
  Country: None (occurrence: None)
  Receive Date: 20101004
  Receipt Date: 20100921
  Transmission Date: 20110411
  Serious: No
  Sender: FDA-Public Use
  Company Number: US-BIOGENIDEC-2010BI033296

PATIENT
  Age: 50 Year
  Sex: Female

DRUGS (2)
  1. TYSABRI [Suspect]
     Indication: MULTIPLE SCLEROSIS
     Route: 042
     Dates: start: 20061212, end: 20090929
  2. TYSABRI [Suspect]
     Route: 042
     Dates: start: 20100216

REACTIONS (5)
  - CRYING [None]
  - EMOTIONAL DISTRESS [None]
  - MENTAL IMPAIRMENT [None]
  - PAIN [None]
  - STRESS [None]
